FAERS Safety Report 9657373 (Version 3)
Quarter: 2013Q4

REPORT INFORMATION
  Report Type: Spontaneous
  Country: US (occurrence: US)
  Receive Date: 20131030
  Receipt Date: 20131121
  Transmission Date: 20140711
  Serious: No
  Sender: FDA-Public Use
  Company Number: US-PFIZER INC-2013306005

PATIENT
  Age: 69 Year
  Sex: Female

DRUGS (13)
  1. XALKORI [Suspect]
     Indication: LUNG NEOPLASM MALIGNANT
     Dosage: 250 MG, 2X/DAY
     Route: 048
     Dates: start: 20130924
  2. XALKORI [Suspect]
     Dosage: UNK
     Dates: start: 20131015
  3. CELEXA [Suspect]
     Dosage: 40 MG, 1X/DAY
     Route: 048
     Dates: start: 20130315
  4. CELEXA [Suspect]
     Dosage: 20 MG, 1X/DAY
     Dates: start: 20131022
  5. CYANOCOBALAMIN [Concomitant]
     Dosage: 1000 UG, DAILY FOR 360 DAYS
     Route: 048
     Dates: start: 20130611
  6. COLACE [Concomitant]
     Dosage: 100 MG, 2X/DAY
     Route: 048
  7. DURAGESIC [Concomitant]
     Dosage: 50 MCG/HR, EVERY 72 HOURS
     Route: 062
     Dates: start: 20131022
  8. FERROUS SULFATE [Concomitant]
     Dosage: 325 MG, 1X/DAY. WITH BREAKFAST
     Route: 048
     Dates: start: 20130715
  9. HYDROCHLOROTHIAZIDE [Concomitant]
     Dosage: TAKE 0.5 TABLET OF 25 MG TABLET, UNK
     Route: 048
     Dates: start: 20130924
  10. LISINOPRIL [Concomitant]
     Dosage: 10 MG, DAILY
     Route: 048
     Dates: start: 20130924
  11. MEGACE [Concomitant]
     Dosage: 10 ML, 2X/DAY
     Route: 048
     Dates: start: 20130611
  12. ZOFRAN [Concomitant]
     Indication: NAUSEA
     Dosage: 8 MG, TAKE 1 TABLET BY MOUTH EVERY 8 HOURS AS NEEDED
     Route: 048
     Dates: start: 20130912
  13. PROMETHAZINE [Concomitant]
     Dosage: 25 MG, EVERY 6 HOURS AS NEEDED
     Route: 048
     Dates: start: 20131001

REACTIONS (3)
  - Irritability [Recovering/Resolving]
  - Nervousness [Recovering/Resolving]
  - Feeling jittery [Unknown]
